FAERS Safety Report 11500667 (Version 1)
Quarter: 2015Q3

REPORT INFORMATION
  Report Type: Spontaneous
  Country: US (occurrence: None)
  Receive Date: 20150911
  Receipt Date: 20150911
  Transmission Date: 20151125
  Serious: No
  Sender: FDA-Public Use
  Company Number: None

PATIENT
  Age: 75 Year
  Sex: Female
  Weight: 68.04 kg

DRUGS (10)
  1. CRANBERRY. [Concomitant]
     Active Substance: CRANBERRY
  2. BUMETANIDE. [Concomitant]
     Active Substance: BUMETANIDE
  3. FENOFIBRATE. [Concomitant]
     Active Substance: FENOFIBRATE
  4. LOPERAMIDE [Suspect]
     Active Substance: LOPERAMIDE
     Indication: COLITIS
     Dosage: 2 MG 11/DAY, 3-MORN/NOON/SUPPER, 2 BEDTIME, 2-OVERNITE BY MOUTH
     Route: 048
     Dates: start: 201407, end: 20140823
  5. OXYGEN. [Concomitant]
     Active Substance: OXYGEN
  6. METOPROLOL [Concomitant]
     Active Substance: METOPROLOL
  7. MULTIVITAMIN [Concomitant]
     Active Substance: VITAMINS
  8. ENALAPRIL [Concomitant]
     Active Substance: ENALAPRIL
  9. PO [Concomitant]
  10. 325 ASPIRIN [Concomitant]

REACTIONS (5)
  - Diarrhoea [None]
  - Product quality issue [None]
  - Product substitution issue [None]
  - Faecal incontinence [None]
  - Drug effect decreased [None]

NARRATIVE: CASE EVENT DATE: 20150823
